FAERS Safety Report 14250419 (Version 1)
Quarter: 2017Q4

REPORT INFORMATION
  Report Type: Spontaneous
  Country: US (occurrence: US)
  Receive Date: 20171205
  Receipt Date: 20171205
  Transmission Date: 20180321
  Serious: Yes (Life-Threatening, Hospitalization, Disabling)
  Sender: FDA-Public Use
  Company Number: None

PATIENT
  Age: 81 Year
  Sex: Female
  Weight: 74.25 kg

DRUGS (9)
  1. ACETAMINOPHEN TYLENOL [Concomitant]
  2. RANITIDINE ZANTAC [Concomitant]
  3. CARVEDILOL COREG [Concomitant]
  4. CERTA-VITE SENIOR-ANTIOXIDANT [Concomitant]
  5. NORVASC [Concomitant]
     Active Substance: AMLODIPINE BESYLATE
  6. PRAVASTATIN PRAVACHOL [Concomitant]
  7. OMEPRAZOLE PRILOSEC [Concomitant]
  8. LOSARTAN. [Concomitant]
     Active Substance: LOSARTAN
  9. EFFEXOR XR [Suspect]
     Active Substance: VENLAFAXINE HYDROCHLORIDE
     Indication: DEPRESSION
     Dosage: ?          QUANTITY:65 TABLET(S);?
     Route: 048
     Dates: start: 20170815, end: 20171120

REACTIONS (10)
  - Blood sodium decreased [None]
  - Drug monitoring procedure not performed [None]
  - Mental status changes [None]
  - Headache [None]
  - Abdominal discomfort [None]
  - Balance disorder [None]
  - Memory impairment [None]
  - Diarrhoea [None]
  - Quality of life decreased [None]
  - Blood pressure increased [None]

NARRATIVE: CASE EVENT DATE: 20170824
